FAERS Safety Report 14629547 (Version 1)
Quarter: 2018Q1

REPORT INFORMATION
  Report Type: Spontaneous
  Country: US (occurrence: US)
  Receive Date: 20180312
  Receipt Date: 20180312
  Transmission Date: 20180509
  Serious: Yes (Life-Threatening, Hospitalization)
  Sender: FDA-Public Use
  Company Number: None

PATIENT
  Age: 60 Year
  Sex: Male

DRUGS (1)
  1. NIVOLUMAB [Suspect]
     Active Substance: NIVOLUMAB
     Indication: METASTATIC RENAL CELL CARCINOMA
     Dosage: ?          OTHER FREQUENCY:Q2WK;?
     Route: 042
     Dates: start: 20180129, end: 20180226

REACTIONS (4)
  - Hyperglycaemia [None]
  - Acidosis [None]
  - Diabetic ketoacidosis [None]
  - Hyperkalaemia [None]

NARRATIVE: CASE EVENT DATE: 20180311
